FAERS Safety Report 5764948-8 (Version None)
Quarter: 2008Q2

REPORT INFORMATION
  Report Type: 
  Country: None (occurrence: None)
  Receive Date: 20080611
  Receipt Date: 20080605
  Transmission Date: 20081010
  Serious: Yes (Other)
  Sender: FDA-Public Use
  Company Number: B0521576A

PATIENT
  Age: 91 Year
  Sex: Female
  Weight: 29 kg

DRUGS (5)
  1. VALTREX [Suspect]
     Indication: HERPES SIMPLEX OPHTHALMIC
     Dosage: 1000MG THREE TIMES PER DAY
     Route: 048
     Dates: start: 20080512, end: 20080516
  2. UNKNOWN DRUG [Concomitant]
     Dosage: 200MG PER DAY
     Route: 048
  3. UNKNOWN DRUG [Concomitant]
     Route: 048
  4. MAPROTILINE HYDROCHLORIDE [Concomitant]
     Dosage: 20MG PER DAY
     Route: 048
  5. MAGNESIUM OXIDE [Concomitant]
     Dosage: 2G PER DAY
     Route: 048

REACTIONS (3)
  - DEPRESSED LEVEL OF CONSCIOUSNESS [None]
  - RENAL IMPAIRMENT [None]
  - URINE OUTPUT DECREASED [None]
